FAERS Safety Report 11660707 (Version 1)
Quarter: 2015Q4

REPORT INFORMATION
  Report Type: Spontaneous
  Country: US (occurrence: None)
  Receive Date: 20151023
  Receipt Date: 20151023
  Transmission Date: 20160304
  Serious: Yes (Hospitalization)
  Sender: FDA-Public Use
  Company Number: None

PATIENT
  Age: 87 Year
  Sex: Male
  Weight: 75.4 kg

DRUGS (2)
  1. ASPIRIN. [Suspect]
     Active Substance: ASPIRIN
     Indication: CARDIOVASCULAR EVENT PROPHYLAXIS
     Dates: start: 20121112, end: 20131115
  2. INDOMETHACIN. [Suspect]
     Active Substance: INDOMETHACIN
     Indication: PAIN
     Route: 048
     Dates: start: 20121101, end: 20131115

REACTIONS (4)
  - Erosive oesophagitis [None]
  - Gastrointestinal haemorrhage [None]
  - Gastric ulcer [None]
  - Gastrooesophageal cancer [None]

NARRATIVE: CASE EVENT DATE: 20131115
